FAERS Safety Report 5761027-0 (Version None)
Quarter: 2008Q2

REPORT INFORMATION
  Report Type: 
  Country: None (occurrence: None)
  Receive Date: 20080606
  Receipt Date: 20080521
  Transmission Date: 20081010
  Serious: Yes (Hospitalization, Other)
  Sender: FDA-Public Use
  Company Number: GB-BAYER-200510246BNE

PATIENT
  Age: 67 Year
  Sex: Male

DRUGS (8)
  1. ASPIRIN [Interacting]
     Indication: MYOCARDIAL INFARCTION
     Route: 048
  2. METALYSE [Suspect]
     Indication: MYOCARDIAL INFARCTION
     Route: 042
  3. HEPARIN [Interacting]
     Indication: MYOCARDIAL INFARCTION
     Route: 042
  4. ENOXAPARIN SODIUM [Interacting]
     Indication: MYOCARDIAL INFARCTION
     Dosage: TOTAL DAILY DOSE: 140 MG
     Route: 058
  5. LOSARTAN POTASSIUM [Concomitant]
     Indication: HYPERTENSION
     Route: 065
  6. DOXAZOSIN MESYLATE [Concomitant]
     Route: 065
  7. HEPARIN [Concomitant]
     Route: 042
  8. NITRATE [Concomitant]
     Route: 042

REACTIONS (7)
  - ABDOMINAL PAIN UPPER [None]
  - CHEST PAIN [None]
  - DYSPHAGIA [None]
  - HAEMATEMESIS [None]
  - ODYNOPHAGIA [None]
  - OESOPHAGEAL HAEMORRHAGE [None]
  - OESOPHAGEAL RUPTURE [None]
